FAERS Safety Report 22026255 (Version 1)
Quarter: 2023Q1

REPORT INFORMATION
  Report Type: Spontaneous
  Country: US (occurrence: None)
  Receive Date: 20230223
  Receipt Date: 20230223
  Transmission Date: 20230417
  Serious: No
  Sender: FDA-Public Use
  Company Number: US-ROCHE-3155055

PATIENT
  Sex: Male

DRUGS (1)
  1. XOLAIR [Suspect]
     Active Substance: OMALIZUMAB
     Indication: Chronic obstructive pulmonary disease
     Dosage: XOLAIR 300MG EVERY 4 WEEKS
     Route: 058
     Dates: start: 201911

REACTIONS (2)
  - Off label use [Unknown]
  - No adverse event [Unknown]
